FAERS Safety Report 9057342 (Version 2)
Quarter: 2013Q1

REPORT INFORMATION
  Report Type: Spontaneous
  Country: FR (occurrence: FR)
  Receive Date: 20130201
  Receipt Date: 20130212
  Transmission Date: 20140127
  Serious: Yes (Life-Threatening, Hospitalization, Other)
  Sender: FDA-Public Use
  Company Number: FR-ROCHE-1186309

PATIENT
  Age: 50 Year
  Sex: Male

DRUGS (3)
  1. LUCENTIS [Suspect]
     Indication: RETINAL VEIN OCCLUSION
     Route: 050
     Dates: start: 20121128
  2. TAHOR [Concomitant]
  3. VEINAMITOL [Concomitant]

REACTIONS (2)
  - Cerebrovascular accident [Unknown]
  - Congestive cardiomyopathy [Unknown]
